FAERS Safety Report 19985774 (Version 1)
Quarter: 2021Q4

REPORT INFORMATION
  Report Type: Spontaneous
  Country: US (occurrence: US)
  Receive Date: 20211022
  Receipt Date: 20211022
  Transmission Date: 20220303
  Serious: No
  Sender: FDA-Public Use
  Company Number: US-GW PHARMA-202110USGW05047

PATIENT

DRUGS (1)
  1. EPIDIOLEX [Suspect]
     Active Substance: CANNABIDIOL
     Indication: Seizure
     Dosage: 160 MILLIGRAM, QD
     Route: 048
     Dates: start: 20210602

REACTIONS (3)
  - Screaming [Unknown]
  - Abnormal behaviour [Unknown]
  - Anger [Unknown]

NARRATIVE: CASE EVENT DATE: 20210101
